FAERS Safety Report 5266526-6 (Version None)
Quarter: 2007Q1

REPORT INFORMATION
  Report Type: 
  Country: None (occurrence: None)
  Receive Date: 20070315
  Receipt Date: 20070309
  Transmission Date: 20070707
  Serious: Yes (Other)
  Sender: FDA-Public Use
  Company Number: US-ROXANE LABORATORIES, INC-2007-BP-03231RO

PATIENT
  Age: 60 Year
  Sex: Male

DRUGS (1)
  1. LITHIUM CARBONATE [Suspect]
     Indication: BIPOLAR DISORDER
     Route: 048

REACTIONS (3)
  - ABNORMAL BEHAVIOUR [None]
  - COGNITIVE DISORDER [None]
  - MOTOR DYSFUNCTION [None]
